FAERS Safety Report 5225793-5 (Version None)
Quarter: 2007Q1

REPORT INFORMATION
  Report Type: 
  Country: None (occurrence: None)
  Receive Date: 20070130
  Receipt Date: 20070130
  Transmission Date: 20070707
  Serious: Yes (Hospitalization)
  Sender: FDA-Public Use
  Company Number: None

PATIENT
  Age: 87 Year
  Sex: Male
  Weight: 69.8539 kg

DRUGS (2)
  1. CIPRO IV [Suspect]
     Indication: DIVERTICULITIS
     Dosage: 400 MG Q24 HR IV
     Route: 042
  2. CIPRO [Suspect]
     Indication: DIVERTICULITIS
     Dosage: 500 MG Q12 HR PO
     Route: 048

REACTIONS (1)
  - CLOSTRIDIAL INFECTION [None]
